FAERS Safety Report 17851882 (Version 2)
Quarter: 2020Q2

REPORT INFORMATION
  Report Type: Spontaneous
  Country: NO (occurrence: NO)
  Receive Date: 20200602
  Receipt Date: 20200616
  Transmission Date: 20200714
  Serious: Yes (Death)
  Sender: FDA-Public Use
  Company Number: NO-BIOVITRUM-2020NO2842

PATIENT
  Sex: Male

DRUGS (4)
  1. KINERET [Suspect]
     Active Substance: ANAKINRA
     Indication: COVID-19
  2. KINERET [Suspect]
     Active Substance: ANAKINRA
     Indication: RESPIRATORY FAILURE
  3. KINERET [Suspect]
     Active Substance: ANAKINRA
     Indication: SERUM FERRITIN INCREASED
  4. KINERET [Suspect]
     Active Substance: ANAKINRA
     Indication: FIBRIN D DIMER INCREASED

REACTIONS (3)
  - Respiratory failure [Fatal]
  - Off label use [Unknown]
  - Fibrin D dimer increased [Unknown]
